FAERS Safety Report 18577478 (Version 1)
Quarter: 2020Q4

REPORT INFORMATION
  Report Type: Report from Study
  Country: US (occurrence: US)
  Receive Date: 20201203
  Receipt Date: 20201203
  Transmission Date: 20210114
  Serious: Yes (Hospitalization)
  Sender: FDA-Public Use
  Company Number: US-JNJFOC-20201147702

PATIENT
  Age: 49 Year
  Sex: Male

DRUGS (2)
  1. SPRAVATO [Suspect]
     Active Substance: ESKETAMINE
     Indication: DEPRESSION
     Dosage: 56 MG, TOTAL 9 DOSES
     Dates: start: 20200915, end: 20201112
  2. SPRAVATO [Suspect]
     Active Substance: ESKETAMINE
     Dates: start: 20201118, end: 20201118

REACTIONS (5)
  - Dissociation [Unknown]
  - Panic disorder [Recovered/Resolved]
  - Blood pressure increased [Recovered/Resolved]
  - Dizziness [Recovered/Resolved]
  - Paraesthesia [Recovered/Resolved]

NARRATIVE: CASE EVENT DATE: 20201118
